FAERS Safety Report 19672708 (Version 3)
Quarter: 2021Q3

REPORT INFORMATION
  Report Type: Spontaneous
  Country: JP (occurrence: JP)
  Receive Date: 20210808
  Receipt Date: 20210914
  Transmission Date: 20211014
  Serious: No
  Sender: FDA-Public Use
  Company Number: JP-AMGEN-JPNSP2021121442

PATIENT
  Age: 90 Year
  Sex: Male

DRUGS (1)
  1. NESP [Suspect]
     Active Substance: DARBEPOETIN ALFA
     Indication: PRODUCT USED FOR UNKNOWN INDICATION
     Dosage: 20 MICROGRAM, QMO
     Route: 058
     Dates: start: 202104

REACTIONS (1)
  - Drug ineffective [Unknown]
